FAERS Safety Report 16382937 (Version 5)
Quarter: 2020Q1

REPORT INFORMATION
  Report Type: Report from Study
  Country: AR (occurrence: AR)
  Receive Date: 20190603
  Receipt Date: 20200115
  Transmission Date: 20200409
  Serious: Yes (Other)
  Sender: FDA-Public Use
  Company Number: PHHY2019AR126197

PATIENT
  Sex: Female

DRUGS (4)
  1. SIMBRINZA [Suspect]
     Active Substance: BRIMONIDINE TARTRATE\BRINZOLAMIDE
     Indication: CATARACT
  2. OPTIR [Concomitant]
     Indication: PRODUCT USED FOR UNKNOWN INDICATION
     Route: 065
  3. SIMBRINZA [Suspect]
     Active Substance: BRIMONIDINE TARTRATE\BRINZOLAMIDE
     Indication: GLAUCOMA
     Dosage: 2 GTT, QD
     Route: 047
  4. LOUTEN [Concomitant]
     Indication: PRODUCT USED FOR UNKNOWN INDICATION
     Route: 065

REACTIONS (10)
  - Intraocular pressure increased [Recovering/Resolving]
  - Blindness [Unknown]
  - Memory impairment [Unknown]
  - Product quality issue [Unknown]
  - Eye infarction [Unknown]
  - Visual impairment [Unknown]
  - Conjunctivitis [Unknown]
  - Dry eye [Unknown]
  - Foreign body in eye [Unknown]
  - Cataract [Unknown]
